FAERS Safety Report 6432076-4 (Version None)
Quarter: 2009Q4

REPORT INFORMATION
  Report Type: 
  Country: None (occurrence: None)
  Receive Date: 20091109
  Receipt Date: 20091028
  Transmission Date: 20100525
  Serious: Yes (Death)
  Sender: FDA-Public Use
  Company Number: US-ROCHE-665581

PATIENT
  Sex: Female

DRUGS (5)
  1. TAMIFLU [Suspect]
     Route: 048
     Dates: start: 20091022, end: 20091026
  2. TRICOR [Concomitant]
  3. COZAAR [Concomitant]
  4. ASPIRIN [Concomitant]
     Dosage: DRUG: BABY ASPIRIN
  5. ACURETIC [Concomitant]

REACTIONS (1)
  - DEATH [None]
